FAERS Safety Report 5780391-X (Version None)
Quarter: 2008Q2

REPORT INFORMATION
  Report Type: 
  Country: None (occurrence: None)
  Receive Date: 20080620
  Receipt Date: 20080616
  Transmission Date: 20081010
  Serious: Yes (Other)
  Sender: FDA-Public Use
  Company Number: FR-BRISTOL-MYERS SQUIBB COMPANY-14230676

PATIENT
  Age: 63 Year
  Sex: Male

DRUGS (4)
  1. REYATAZ [Suspect]
     Dates: start: 20070801
  2. ZIAGEN [Concomitant]
  3. EMTRIVA [Concomitant]
  4. PANTOPRAZOLE SODIUM [Concomitant]

REACTIONS (1)
  - MYOCARDIAL INFARCTION [None]
